FAERS Safety Report 20702771 (Version 1)
Quarter: 2022Q2

REPORT INFORMATION
  Report Type: Spontaneous
  Country: US (occurrence: None)
  Receive Date: 20220412
  Receipt Date: 20220412
  Transmission Date: 20220720
  Serious: No
  Sender: FDA-Public Use
  Company Number: 2022A126982

PATIENT
  Age: 20874 Day
  Sex: Female
  Weight: 96.2 kg

DRUGS (1)
  1. FASENRA [Suspect]
     Active Substance: BENRALIZUMAB
     Indication: Asthma
     Route: 058
     Dates: start: 20220302

REACTIONS (7)
  - Streptococcal infection [Not Recovered/Not Resolved]
  - Immune system disorder [Unknown]
  - Gastrointestinal disorder [Unknown]
  - Enlarged uvula [Unknown]
  - Neutrophil count increased [Unknown]
  - Lymphocyte count decreased [Unknown]
  - Monocyte count increased [Unknown]

NARRATIVE: CASE EVENT DATE: 20220314
